FAERS Safety Report 12482984 (Version 2)
Quarter: 2016Q3

REPORT INFORMATION
  Report Type: Report from Study
  Country: MX (occurrence: MX)
  Receive Date: 20160620
  Receipt Date: 20160824
  Transmission Date: 20161109
  Serious: Yes (Hospitalization, Other)
  Sender: FDA-Public Use
  Company Number: MX-ELI_LILLY_AND_COMPANY-MX201602002770

PATIENT
  Age: 41 Year
  Sex: Female

DRUGS (13)
  1. CALCIUM [Concomitant]
     Active Substance: CALCIUM
     Indication: HYPERTHYROIDISM
     Dosage: 1 DF, QD
     Route: 048
  2. TAPAZOL                            /00022901/ [Concomitant]
     Indication: HYPERTHYROIDISM
  3. INSULIN, LISPRO [Suspect]
     Active Substance: INSULIN LISPRO
     Dosage: 8 U, EACH EVENING
     Route: 065
     Dates: start: 20160129
  4. PROPANOL [Concomitant]
     Active Substance: PROPRANOLOL HYDROCHLORIDE
     Indication: THYROID DISORDER
     Dosage: UNK, QD
     Route: 048
     Dates: start: 201601
  5. FOLIC ACID. [Concomitant]
     Active Substance: FOLIC ACID
     Indication: VITAMIN SUPPLEMENTATION
     Dosage: UNK
     Route: 048
  6. TAPAZOL                            /00022901/ [Concomitant]
     Indication: THYROID DISORDER
     Dosage: 5 MG, TID
     Route: 048
     Dates: start: 201601
  7. PROPANOL [Concomitant]
     Active Substance: PROPRANOLOL HYDROCHLORIDE
     Indication: HYPERTHYROIDISM
  8. FERROUS SULFATE. [Concomitant]
     Active Substance: FERROUS SULFATE
     Indication: VITAMIN SUPPLEMENTATION
     Dosage: UNK, UNKNOWN
     Route: 048
  9. INSULIN, LISPRO [Suspect]
     Active Substance: INSULIN LISPRO
     Indication: GESTATIONAL DIABETES
     Dosage: 18 U, EACH MORNING
     Route: 065
     Dates: start: 20160129
  10. INSULIN, LISPRO [Suspect]
     Active Substance: INSULIN LISPRO
     Dosage: 20 IU, EACH MORNING
     Route: 065
  11. CALCIUM [Concomitant]
     Active Substance: CALCIUM
     Indication: VITAMIN SUPPLEMENTATION
  12. INSULIN, LISPRO [Suspect]
     Active Substance: INSULIN LISPRO
     Dosage: 68 IU, QD
     Route: 065
  13. INSULIN, LISPRO [Suspect]
     Active Substance: INSULIN LISPRO
     Dosage: 15 IU, EACH EVENING
     Route: 065

REACTIONS (5)
  - Cephalo-pelvic disproportion [Unknown]
  - Thyroid disorder [Unknown]
  - Gestational diabetes [Unknown]
  - Exposure during breast feeding [Unknown]
  - Maternal exposure during pregnancy [Unknown]

NARRATIVE: CASE EVENT DATE: 20160129
